FAERS Safety Report 6161243-2 (Version None)
Quarter: 2009Q2

REPORT INFORMATION
  Report Type: 
  Country: None (occurrence: None)
  Receive Date: 20090417
  Receipt Date: 20090410
  Transmission Date: 20091009
  Serious: Yes (Death)
  Sender: FDA-Public Use
  Company Number: 2009SP000892

PATIENT
  Age: 52 Year
  Sex: Male
  Weight: 137.4 kg

DRUGS (10)
  1. LUNESTA [Suspect]
  2. OXYMORPHONE HYDROCHLORIDE [Suspect]
     Indication: MYALGIA
     Dosage: 30 MG;Q12H; ORAL
     Route: 048
     Dates: start: 20090202
  3. OXYMORPHONE HYDROCHLORIDE [Suspect]
     Indication: RHEUMATOID ARTHRITIS
     Dosage: 30 MG;Q12H; ORAL
     Route: 048
     Dates: start: 20090202
  4. NABUMETONE [Suspect]
     Indication: ARTHRITIS
     Dosage: 750 MG; BID; ORAL
     Route: 048
     Dates: start: 20070619, end: 20090201
  5. LORATADINE [Suspect]
     Indication: RHINITIS ALLERGIC
     Dosage: 10 MG; QD; ORAL
     Route: 048
     Dates: start: 20081031, end: 20090201
  6. FLUOXETINE [Suspect]
     Indication: DEPRESSION
     Dosage: 40 MG; QD; ORAL
     Route: 048
     Dates: start: 20071008, end: 20090201
  7. LISINOPRIL AND HYDROCHLOROTHIAZIDE [Suspect]
     Indication: HYPERTENSION
     Dosage: QD; ORAL
     Route: 048
     Dates: start: 20080404, end: 20090201
  8. ANDRODERM [Suspect]
     Indication: HYPOGONADISM
     Dosage: 5 MG; QD; TRANSDERMAL
     Route: 062
     Dates: start: 20080609, end: 20090201
  9. FOLIC ACID [Suspect]
     Dosage: 1  MG; QD; ORAL
     Route: 048
     Dates: start: 20070417, end: 20090201
  10. ACETAMINOPHEN AND HYDROCODONE BITARTRATE [Concomitant]

REACTIONS (2)
  - PAIN [None]
  - UNRESPONSIVE TO STIMULI [None]
